FAERS Safety Report 8586889-3 (Version None)
Quarter: 2012Q3

REPORT INFORMATION
  Report Type: 
  Country: None (occurrence: None)
  Receive Date: 20120810
  Receipt Date: 20120806
  Transmission Date: 20120928
  Serious: Yes (Hospitalization, Other)
  Sender: FDA-Public Use
  Company Number: US-ELI_LILLY_AND_COMPANY-US201208002010

PATIENT
  Sex: Female

DRUGS (2)
  1. HORMONES [Concomitant]
     Indication: HORMONE REPLACEMENT THERAPY
  2. RALOXIFENE HYDROCHLORIDE [Suspect]
     Indication: OSTEOPOROSIS
     Dosage: UNK

REACTIONS (3)
  - HOSPITALISATION [None]
  - PULMONARY EMBOLISM [None]
  - CARDIOMEGALY [None]
